FAERS Safety Report 7396168-8 (Version None)
Quarter: 2011Q2

REPORT INFORMATION
  Report Type: 
  Country: None (occurrence: None)
  Receive Date: 20110406
  Receipt Date: 20110324
  Transmission Date: 20111010
  Serious: Yes (Hospitalization)
  Sender: FDA-Public Use
  Company Number: US-ELI_LILLY_AND_COMPANY-US201103008894

PATIENT
  Age: 42 Year
  Sex: Female

DRUGS (4)
  1. FORTEO [Suspect]
     Indication: OSTEOPOROSIS
     Dosage: 20 UG, QD
     Route: 065
     Dates: start: 20100101, end: 20110101
  2. HYDROCODONE [Concomitant]
     Dosage: UNK, QD
  3. AMBIEN [Concomitant]
     Dosage: UNK, EACH EVENING
  4. FORTEO [Suspect]
     Dosage: 20 UG, QD
     Route: 065

REACTIONS (5)
  - INJECTION SITE PAIN [None]
  - ABDOMINAL HERNIA [None]
  - PROCEDURAL COMPLICATION [None]
  - ABDOMINAL PAIN [None]
  - HERNIA [None]
